FAERS Safety Report 4399192-2 (Version None)
Quarter: 2004Q2

REPORT INFORMATION
  Report Type: 
  Country: None (occurrence: None)
  Receive Date: 20040621
  Receipt Date: 20031114
  Transmission Date: 20050107
  Serious: Yes (Hospitalization, Other)
  Sender: FDA-Public Use
  Company Number: USA-2003-0008901

PATIENT
  Age: 45 Year
  Sex: Male
  Weight: 93 kg

DRUGS (1)
  1. OXYCONTIN [Suspect]
     Indication: PAIN
     Dosage: SEE TEXT
     Dates: start: 20000101

REACTIONS (3)
  - DRUG DEPENDENCE [None]
  - OSTEOARTHRITIS [None]
  - PAIN [None]
